FAERS Safety Report 21365937 (Version 4)
Quarter: 2022Q4

REPORT INFORMATION
  Report Type: Report from Study
  Country: EG (occurrence: EG)
  Receive Date: 20220922
  Receipt Date: 20221102
  Transmission Date: 20230113
  Serious: Yes (Disabling)
  Sender: FDA-Public Use
  Company Number: EG-BoehringerIngelheim-2022-BI-156744

PATIENT
  Age: 68 Year
  Sex: Male

DRUGS (13)
  1. OFEV [Suspect]
     Active Substance: NINTEDANIB
     Indication: Pulmonary fibrosis
     Route: 048
     Dates: start: 20210815, end: 20220307
  2. OFEV [Suspect]
     Active Substance: NINTEDANIB
     Route: 048
     Dates: start: 202206, end: 202208
  3. OFEV [Suspect]
     Active Substance: NINTEDANIB
     Route: 048
     Dates: start: 20220815
  4. Solupred [Concomitant]
     Indication: Product used for unknown indication
     Dates: start: 2019
  5. Solupred [Concomitant]
     Dates: start: 2020
  6. GAPTIN [Concomitant]
     Indication: Product used for unknown indication
  7. THIOTACID COMPOUND [Concomitant]
     Indication: Product used for unknown indication
  8. IVABRADINE [Concomitant]
     Active Substance: IVABRADINE
     Indication: Product used for unknown indication
     Dates: start: 2019
  9. Betacor [Concomitant]
     Indication: Product used for unknown indication
     Dates: start: 2020
  10. NEXIUM [Concomitant]
     Active Substance: ESOMEPRAZOLE MAGNESIUM
     Indication: Gastrooesophageal reflux disease
     Dates: start: 2019
  11. REBAMIPIDE [Concomitant]
     Active Substance: REBAMIPIDE
     Indication: Product used for unknown indication
     Dosage: 1 TAB BEFORE LUNCH
     Route: 048
     Dates: start: 20220928
  12. Antodine [Concomitant]
     Indication: Product used for unknown indication
     Dosage: 1 TAB AT EVENING
     Dates: start: 20220928
  13. Gastrazole [Concomitant]
     Indication: Product used for unknown indication
     Dosage: 1 TAB AT MORNING
     Route: 048
     Dates: start: 20220928

REACTIONS (10)
  - Oxygen saturation decreased [Not Recovered/Not Resolved]
  - Abdominal pain upper [Recovered/Resolved]
  - Diarrhoea [Recovered/Resolved]
  - Platelet count decreased [Recovered/Resolved]
  - Drug ineffective [Not Recovered/Not Resolved]
  - Dyspnoea exertional [Not Recovered/Not Resolved]
  - Platelet count decreased [Recovered/Resolved]
  - Diarrhoea [Recovered/Resolved]
  - Abdominal discomfort [Not Recovered/Not Resolved]
  - Gastrointestinal pain [Not Recovered/Not Resolved]

NARRATIVE: CASE EVENT DATE: 20211201
